FAERS Safety Report 14653608 (Version 1)
Quarter: 2018Q1

REPORT INFORMATION
  Report Type: Spontaneous
  Country: US (occurrence: US)
  Receive Date: 20180319
  Receipt Date: 20180319
  Transmission Date: 20180509
  Serious: No
  Sender: FDA-Public Use
  Company Number: US-BAYER-2018-051137

PATIENT
  Age: 22 Month
  Sex: Female
  Weight: 16 kg

DRUGS (1)
  1. MIRALAX [Suspect]
     Active Substance: POLYETHYLENE GLYCOL 3350
     Indication: GASTROINTESTINAL DISORDER
     Dosage: 2 DF, UNK (TABLESPOONS)
     Route: 048
     Dates: start: 20180308

REACTIONS (5)
  - Drug ineffective [None]
  - Wrong technique in product usage process [Unknown]
  - Off label use [Unknown]
  - Constipation [Unknown]
  - Drug administered to patient of inappropriate age [Unknown]

NARRATIVE: CASE EVENT DATE: 20180308
